FAERS Safety Report 14073335 (Version 3)
Quarter: 2018Q1

REPORT INFORMATION
  Report Type: Spontaneous
  Country: AT (occurrence: AT)
  Receive Date: 20171011
  Receipt Date: 20180104
  Transmission Date: 20180508
  Serious: Yes (Other)
  Sender: FDA-Public Use
  Company Number: AT-ELI_LILLY_AND_COMPANY-AT201710001239

PATIENT
  Age: 29 Year
  Sex: Male
  Weight: 106 kg

DRUGS (14)
  1. TRITTICO [Concomitant]
     Active Substance: TRAZODONE HYDROCHLORIDE
     Indication: PRODUCT USED FOR UNKNOWN INDICATION
     Dosage: 150 MG, UNKNOWN
     Route: 048
     Dates: start: 20170420, end: 20170426
  2. TRITTICO [Concomitant]
     Active Substance: TRAZODONE HYDROCHLORIDE
     Dosage: 75 MG, UNKNOWN
     Route: 048
     Dates: start: 20170427, end: 20170503
  3. SERACTIL [Concomitant]
     Active Substance: DEXIBUPROFEN
     Indication: PRODUCT USED FOR UNKNOWN INDICATION
     Dosage: 400 DF, UNKNOWN
     Route: 048
     Dates: start: 20170508, end: 20170512
  4. VENLAFAXIN [Concomitant]
     Active Substance: VENLAFAXINE HYDROCHLORIDE
     Indication: PRODUCT USED FOR UNKNOWN INDICATION
     Dosage: 225 MG, UNKNOWN
     Route: 048
     Dates: start: 20170422, end: 20170427
  5. VENLAFAXIN [Concomitant]
     Active Substance: VENLAFAXINE HYDROCHLORIDE
     Dosage: 150 MG, UNKNOWN
     Route: 048
     Dates: start: 20170428, end: 20170501
  6. ABILIFY [Concomitant]
     Active Substance: ARIPIPRAZOLE
     Indication: PRODUCT USED FOR UNKNOWN INDICATION
     Dosage: 5 MG, UNKNOWN
     Route: 065
     Dates: start: 20170502, end: 20170509
  7. HOVA [Concomitant]
     Active Substance: HERBALS\HOPS\VALERIAN
     Dosage: UNK UNK, UNKNOWN
     Route: 048
     Dates: start: 20170427, end: 20170517
  8. CALMABEN [Concomitant]
     Indication: SLEEP DISORDER
     Dosage: UNK
     Dates: start: 20170427, end: 20170517
  9. TRITTICO [Concomitant]
     Active Substance: TRAZODONE HYDROCHLORIDE
     Dosage: 150 MG, UNKNOWN
     Route: 048
     Dates: start: 20170504
  10. HALSET                             /00283202/ [Concomitant]
     Indication: PRODUCT USED FOR UNKNOWN INDICATION
     Dosage: UNK UNK, UNKNOWN
     Route: 048
     Dates: start: 20170507, end: 20170516
  11. WELLBUTRIN [Concomitant]
     Active Substance: BUPROPION HYDROCHLORIDE
     Indication: PRODUCT USED FOR UNKNOWN INDICATION
     Dosage: 150 MG, UNKNOWN
     Route: 048
     Dates: start: 20170515
  12. STRATTERA [Suspect]
     Active Substance: ATOMOXETINE HYDROCHLORIDE
     Indication: ATTENTION DEFICIT/HYPERACTIVITY DISORDER
     Dosage: 40 MG, DAILY
     Route: 048
     Dates: start: 20170511, end: 20170514
  13. HOVA [Concomitant]
     Active Substance: HERBALS\HOPS\VALERIAN
     Indication: PRODUCT USED FOR UNKNOWN INDICATION
     Dosage: UNK UNK, UNKNOWN
     Route: 048
     Dates: start: 20170430, end: 20170517
  14. VENLAFAXIN [Concomitant]
     Active Substance: VENLAFAXINE HYDROCHLORIDE
     Dosage: 150 MG, UNKNOWN
     Route: 048
     Dates: start: 20170502, end: 20170509

REACTIONS (3)
  - Dizziness [Recovered/Resolved]
  - Cardiovascular disorder [Recovered/Resolved]
  - Heart rate increased [Unknown]

NARRATIVE: CASE EVENT DATE: 20170511
